FAERS Safety Report 13527529 (Version 1)
Quarter: 2017Q2

REPORT INFORMATION
  Report Type: Spontaneous
  Country: US (occurrence: US)
  Receive Date: 20170509
  Receipt Date: 20170509
  Transmission Date: 20170830
  Serious: No
  Sender: FDA-Public Use
  Company Number: None

PATIENT

DRUGS (1)
  1. EQUATE HAIR REGROWTH TREATMENT [Suspect]
     Active Substance: MINOXIDIL

REACTIONS (8)
  - Balance disorder [None]
  - Product quality issue [None]
  - Malaise [None]
  - Erythema [None]
  - Headache [None]
  - Skin discolouration [None]
  - Nausea [None]
  - Syncope [None]
